FAERS Safety Report 16306449 (Version 1)
Quarter: 2019Q2

REPORT INFORMATION
  Report Type: Spontaneous
  Country: FR (occurrence: FR)
  Receive Date: 20190513
  Receipt Date: 20190513
  Transmission Date: 20190711
  Serious: Yes (Other)
  Sender: FDA-Public Use
  Company Number: FR-MYLANLABS-2019M1044545

PATIENT
  Age: 60 Year
  Sex: Male
  Weight: 100 kg

DRUGS (14)
  1. BACTRIM [Suspect]
     Active Substance: SULFAMETHOXAZOLE\TRIMETHOPRIM
     Indication: INFECTION
     Dosage: 1600 MILLIGRAM
     Route: 048
     Dates: start: 20181108
  2. URBANYL [Concomitant]
     Active Substance: CLOBAZAM
     Dosage: 40 MILLIGRAM, QD
     Route: 048
  3. LEVOFLOXACIN. [Suspect]
     Active Substance: LEVOFLOXACIN
     Indication: INFECTION
     Dosage: 750 MILLIGRAM
     Dates: start: 20180829, end: 20181108
  4. ZAMUDOL LP 100 MG, G?LULE ? LIB?RATION PROLONG?E [Suspect]
     Active Substance: TRAMADOL HYDROCHLORIDE
     Indication: PRODUCT USED FOR UNKNOWN INDICATION
     Dosage: 200 MILLIGRAM, QD
     Route: 048
     Dates: end: 20181115
  5. ECONAZOLE ARROW [Concomitant]
     Active Substance: ECONAZOLE
     Dosage: UNK UNK, QD
  6. PANTOPRAZOLE SODIUM. [Concomitant]
     Active Substance: PANTOPRAZOLE SODIUM
     Dosage: 20 MILLIGRAM, QD
     Route: 048
  7. AERIUS                             /01009701/ [Concomitant]
     Active Substance: EBASTINE
     Dosage: 5 MILLIGRAM, QD
     Route: 048
  8. EPITOMAX [Concomitant]
     Active Substance: TOPIRAMATE
     Dosage: 300 MILLIGRAM, QD
     Route: 048
  9. DALACINE                           /00166003/ [Concomitant]
     Active Substance: CLINDAMYCIN
     Dosage: 12 GRAM, QD
     Dates: start: 20180913, end: 20181018
  10. CUBICIN [Suspect]
     Active Substance: DAPTOMYCIN
     Indication: INFECTION
     Dosage: 2100 MILLIGRAM, QD
     Route: 042
     Dates: start: 20181019, end: 20181115
  11. LOVENOX [Concomitant]
     Active Substance: ENOXAPARIN SODIUM
     Route: 058
  12. ALEPSAL                            /01606601/ [Concomitant]
     Active Substance: CAFFEINE\PHENOBARBITAL
     Dosage: 200 MILLIGRAM, QD
     Route: 048
  13. LAMICTAL [Concomitant]
     Active Substance: LAMOTRIGINE
     Dosage: 1600 MILLIGRAM, QD
     Route: 048
  14. TAZOCILLINE [Suspect]
     Active Substance: PIPERACILLIN SODIUM\TAZOBACTAM SODIUM
     Indication: INFECTION
     Dosage: UNK
     Dates: start: 20180913, end: 20181115

REACTIONS (2)
  - Essential tremor [Unknown]
  - Speech disorder [Unknown]

NARRATIVE: CASE EVENT DATE: 201810
